FAERS Safety Report 6555539-X (Version None)
Quarter: 2010Q1

REPORT INFORMATION
  Report Type: 
  Country: None (occurrence: None)
  Receive Date: 20100125
  Receipt Date: 20100108
  Transmission Date: 20100710
  Serious: Yes (Other)
  Sender: FDA-Public Use
  Company Number: 1000010920

PATIENT
  Age: 60 Year
  Sex: Male

DRUGS (8)
  1. ESCITALOPRAM [Suspect]
     Indication: DEPRESSION
     Dosage: 10 MG (10 MG, 1 IN 1 D), ORAL
     Route: 048
     Dates: start: 20090111, end: 20090113
  2. MONO-MAK(TABLETS) [Concomitant]
  3. MONOPRIL [Concomitant]
  4. HYPOTHIAZID (TABLETS) [Concomitant]
  5. THROMBO (TABLETS) [Concomitant]
  6. ATENOLOL [Concomitant]
  7. GLURENORM (TABLETS) [Concomitant]
  8. LIPRIMAR (TABLETS) [Concomitant]

REACTIONS (3)
  - HYPERHIDROSIS [None]
  - RESTLESSNESS [None]
  - SLEEP DISORDER [None]
